FAERS Safety Report 4755972-2 (Version None)
Quarter: 2005Q3

REPORT INFORMATION
  Report Type: 
  Country: None (occurrence: None)
  Receive Date: 20050830
  Receipt Date: 20050818
  Transmission Date: 20060218
  Serious: Yes (Life-Threatening)
  Sender: FDA-Public Use
  Company Number: CH-BRISTOL-MYERS SQUIBB COMPANY-13082714

PATIENT
  Age: 13 Year
  Sex: Male
  Weight: 51 kg

DRUGS (16)
  1. METHOTREXATE SODIUM [Interacting]
     Indication: ACUTE LYMPHOCYTIC LEUKAEMIA
     Route: 041
     Dates: start: 20050704
  2. METHOTREXATE SODIUM [Interacting]
     Route: 037
     Dates: start: 20050704
  3. LASIX [Interacting]
     Route: 041
  4. OMEPRAZOLE [Interacting]
     Route: 041
  5. LORAZEPAM [Suspect]
     Route: 040
     Dates: start: 20050711, end: 20050711
  6. HYDROCORTISONE [Concomitant]
     Route: 037
     Dates: start: 20050704, end: 20050704
  7. ARA-C [Concomitant]
     Route: 037
     Dates: start: 20050704, end: 20050704
  8. ARA-C [Concomitant]
     Route: 041
     Dates: start: 20050705, end: 20050705
  9. LEUCOVORIN [Concomitant]
     Route: 041
  10. DEXAMETHASONE [Concomitant]
     Route: 047
  11. IMATINIB MESYLATE [Concomitant]
     Route: 048
  12. ZOFRAN [Concomitant]
     Route: 041
  13. PASPERTIN [Concomitant]
     Route: 041
  14. AKINETON [Concomitant]
     Route: 041
  15. GRANOCYTE [Concomitant]
  16. STILNOX [Concomitant]
     Route: 048

REACTIONS (5)
  - CONVULSION [None]
  - DRUG LEVEL INCREASED [None]
  - ENCEPHALOPATHY [None]
  - RENAL FAILURE ACUTE [None]
  - RESPIRATORY ARREST [None]
